FAERS Safety Report 23642436 (Version 1)
Quarter: 2024Q1

REPORT INFORMATION
  Report Type: Spontaneous
  Country: FR (occurrence: FR)
  Receive Date: 20240318
  Receipt Date: 20240318
  Transmission Date: 20240410
  Serious: Yes (Other)
  Sender: FDA-Public Use
  Company Number: FR-GSKCCFEMEA-Case-01930864_AE-81164

PATIENT

DRUGS (1)
  1. NUCALA [Suspect]
     Active Substance: MEPOLIZUMAB
     Indication: Bronchopulmonary aspergillosis allergic
     Dosage: UNK

REACTIONS (4)
  - Bronchopulmonary aspergillosis allergic [Unknown]
  - Condition aggravated [Unknown]
  - Drug effective for unapproved indication [Unknown]
  - Off label use [Unknown]
